FAERS Safety Report 4345118-7 (Version None)
Quarter: 2004Q2

REPORT INFORMATION
  Report Type: 
  Country: None (occurrence: None)
  Receive Date: 20040420
  Receipt Date: 20040406
  Transmission Date: 20050107
  Serious: Yes (Hospitalization, Disabling, Other)
  Sender: FDA-Public Use
  Company Number: US-SHR-03-004654

PATIENT
  Age: 61 Year
  Sex: Male
  Weight: 81.6 kg

DRUGS (17)
  1. BETASERON [Suspect]
     Indication: MULTIPLE SCLEROSIS
     Dosage: 8 MIU, EVERY 2D, SUBCUTANEOUS (SEE IMAGE)
     Route: 058
     Dates: start: 20010801, end: 20030101
  2. BETASERON [Suspect]
     Indication: MULTIPLE SCLEROSIS
     Dosage: 8 MIU, EVERY 2D, SUBCUTANEOUS (SEE IMAGE)
     Route: 058
     Dates: start: 20030401
  3. DYE [Suspect]
     Dosage: UNK, UNK, UNK
     Route: 065
     Dates: start: 20021201, end: 20021201
  4. NEURONTIN [Concomitant]
  5. HYTRIN [Concomitant]
  6. ZOLOFT [Concomitant]
  7. COLACE (DUCUSATE SODIUM) [Concomitant]
  8. NEXIUM [Concomitant]
  9. TYLENOL (CAPLET) [Concomitant]
  10. LASIX [Concomitant]
  11. DETROL [Concomitant]
  12. SENOKOT [Concomitant]
  13. CROMOGEN (CROMOGLICATE SODIUM) [Concomitant]
  14. HUMULIN N [Concomitant]
  15. ASPIRIN [Concomitant]
  16. ACTOS [Concomitant]
  17. ELOCON [Concomitant]

REACTIONS (15)
  - BLISTER [None]
  - CONDITION AGGRAVATED [None]
  - DECUBITUS ULCER [None]
  - DEHYDRATION [None]
  - DIALYSIS [None]
  - DIARRHOEA [None]
  - FAECALOMA [None]
  - FALL [None]
  - KIDNEY INFECTION [None]
  - LEG AMPUTATION [None]
  - MULTIPLE SCLEROSIS [None]
  - PROCEDURAL COMPLICATION [None]
  - PSEUDOMONAS INFECTION [None]
  - RENAL FAILURE ACUTE [None]
  - STAPHYLOCOCCAL INFECTION [None]
